FAERS Safety Report 5834451-5 (Version None)
Quarter: 2008Q3

REPORT INFORMATION
  Report Type: 
  Country: None (occurrence: None)
  Receive Date: 20080805
  Receipt Date: 20080731
  Transmission Date: 20090109
  Serious: Yes (Other)
  Sender: FDA-Public Use
  Company Number: GR-BOEHRINGER INGELHEIM GMBH, GERMANY-2008-DE-04518GD

PATIENT
  Sex: Female

DRUGS (5)
  1. CLONIDINE [Suspect]
     Indication: TOURETTE'S DISORDER
     Dosage: UP TO 600 MCG
  2. HALOPERIDOL [Suspect]
     Indication: TOURETTE'S DISORDER
     Dosage: UP TO 15 MG
  3. PIMOZIDE [Suspect]
     Indication: TOURETTE'S DISORDER
     Dosage: UP TO 8 MG
  4. ANTIDEPRESSANTS [Suspect]
     Indication: TOURETTE'S DISORDER
  5. ANXIOLYTIC MEDICATIONS [Suspect]
     Indication: TOURETTE'S DISORDER

REACTIONS (1)
  - DRUG INEFFECTIVE [None]
